FAERS Safety Report 24139879 (Version 4)
Quarter: 2025Q3

REPORT INFORMATION
  Report Type: Report from Study
  Country: CA (occurrence: CA)
  Receive Date: 20240726
  Receipt Date: 20250812
  Transmission Date: 20251020
  Serious: Yes (Hospitalization, Other)
  Sender: TAKEDA
  Company Number: CA-TAKEDA-2023TUS116626

PATIENT
  Age: 22 Year
  Sex: Female

DRUGS (21)
  1. HUMAN IMMUNOGLOBULIN G [Suspect]
     Active Substance: HUMAN IMMUNOGLOBULIN G
     Indication: Rasmussen encephalitis
     Dosage: 18 GRAM, 1/WEEK
     Dates: start: 20231128
  2. HUMAN IMMUNOGLOBULIN G [Suspect]
     Active Substance: HUMAN IMMUNOGLOBULIN G
     Dosage: 18 GRAM, 1/WEEK
  3. HUMAN IMMUNOGLOBULIN G [Suspect]
     Active Substance: HUMAN IMMUNOGLOBULIN G
     Dosage: 18 GRAM, 1/WEEK
  4. PREDNISONE [Concomitant]
     Active Substance: PREDNISONE
  5. PREDNISONE [Concomitant]
     Active Substance: PREDNISONE
  6. LAMOTRIGINE [Concomitant]
     Active Substance: LAMOTRIGINE
  7. LAMOTRIGINE [Concomitant]
     Active Substance: LAMOTRIGINE
  8. CLOBAZAM [Concomitant]
     Active Substance: CLOBAZAM
  9. CLOBAZAM [Concomitant]
     Active Substance: CLOBAZAM
  10. LACOSAMIDE [Concomitant]
     Active Substance: LACOSAMIDE
  11. LACOSAMIDE [Concomitant]
     Active Substance: LACOSAMIDE
  12. ESCITALOPRAM [Concomitant]
     Active Substance: ESCITALOPRAM OXALATE
  13. ESCITALOPRAM [Concomitant]
     Active Substance: ESCITALOPRAM OXALATE
  14. SULFATRIM [Concomitant]
     Active Substance: SULFAMETHOXAZOLE\TRIMETHOPRIM
  15. FYCOMPA [Concomitant]
     Active Substance: PERAMPANEL
  16. FYCOMPA [Concomitant]
     Active Substance: PERAMPANEL
  17. APTIOM [Concomitant]
     Active Substance: ESLICARBAZEPINE ACETATE
  18. APTIOM [Concomitant]
     Active Substance: ESLICARBAZEPINE ACETATE
  19. APTIOM [Concomitant]
     Active Substance: ESLICARBAZEPINE ACETATE
  20. DILANTIN [Concomitant]
     Active Substance: PHENYTOIN
  21. DILANTIN [Concomitant]
     Active Substance: PHENYTOIN

REACTIONS (6)
  - Infection [Unknown]
  - Coma [Recovered/Resolved]
  - Seizure [Unknown]
  - Off label use [Unknown]
  - Product use issue [Unknown]
  - Dizziness [Unknown]

NARRATIVE: CASE EVENT DATE: 20231128
